FAERS Safety Report 7775794-8 (Version None)
Quarter: 2011Q3

REPORT INFORMATION
  Report Type: 
  Country: None (occurrence: None)
  Receive Date: 20110923
  Receipt Date: 20110920
  Transmission Date: 20111222
  Serious: Yes (Hospitalization, Other)
  Sender: FDA-Public Use
  Company Number: US-ROXANE LABORATORIES, INC.-2011-RO-01324RO

PATIENT
  Age: 50 Year
  Sex: Female

DRUGS (3)
  1. SERTRALINE HYDROCHLORIDE [Suspect]
     Indication: MAJOR DEPRESSION
     Dosage: 50 MG
     Route: 048
  2. CITALOPRAM HYDROBROMIDE [Suspect]
     Indication: MAJOR DEPRESSION
     Dosage: 20 MG
     Route: 048
  3. GABAPENTIN [Suspect]
     Indication: MORTON'S NEUROMA
     Dosage: 300 MG
     Route: 048

REACTIONS (2)
  - GRAND MAL CONVULSION [None]
  - DRUG INEFFECTIVE [None]
